FAERS Safety Report 23708228 (Version 1)
Quarter: 2024Q2

REPORT INFORMATION
  Report Type: Spontaneous
  Country: FR (occurrence: FR)
  Receive Date: 20240404
  Receipt Date: 20240404
  Transmission Date: 20240717
  Serious: Yes (Other)
  Sender: FDA-Public Use
  Company Number: FR-002147023-NVSC2023FR120945

PATIENT
  Age: 2 Year
  Sex: Female

DRUGS (22)
  1. CYCLOSPORINE [Suspect]
     Active Substance: CYCLOSPORINE
     Indication: Focal segmental glomerulosclerosis
     Dosage: UNK
     Route: 042
  2. CYCLOSPORINE [Suspect]
     Active Substance: CYCLOSPORINE
     Indication: Immunosuppressant drug therapy
  3. DARATUMUMAB [Suspect]
     Active Substance: DARATUMUMAB
     Indication: Nephrotic syndrome
     Dosage: AT DAY 150, FIFTH INFUSION
     Route: 065
  4. DARATUMUMAB [Suspect]
     Active Substance: DARATUMUMAB
     Dosage: AT DAY 280, 6TH INFUSION
     Route: 065
  5. DARATUMUMAB [Suspect]
     Active Substance: DARATUMUMAB
     Dosage: Q28D (Q4WEEKS)AT 1 G/1.73 M2 FROM DAY 65
     Route: 065
  6. METHYLPREDNISOLONE [Suspect]
     Active Substance: METHYLPREDNISOLONE
     Indication: Renal transplant
     Dosage: UNK (1 G/1.73M2 AT DAYS 6, 8 AND 10 (3 PULSES)0
     Route: 065
  7. METHYLPREDNISOLONE [Suspect]
     Active Substance: METHYLPREDNISOLONE
     Indication: Immunosuppressant drug therapy
  8. MYCOPHENOLATE MOFETIL [Suspect]
     Active Substance: MYCOPHENOLATE MOFETIL
     Indication: Renal transplant
     Dosage: UNK
     Route: 065
  9. MYCOPHENOLATE MOFETIL [Suspect]
     Active Substance: MYCOPHENOLATE MOFETIL
     Indication: Immunosuppressant drug therapy
  10. OBINUTUZUMAB [Suspect]
     Active Substance: OBINUTUZUMAB
     Dosage: UNK, QW (3 ADDITIONAL INFUSIONS)
     Route: 042
  11. OBINUTUZUMAB [Suspect]
     Active Substance: OBINUTUZUMAB
     Indication: Renal transplant
     Dosage: UNK (1G/1.73 M2)
     Route: 042
  12. PENTAMIDINE [Suspect]
     Active Substance: PENTAMIDINE
     Indication: Pneumocystis jirovecii pneumonia
     Dosage: UNK
     Route: 065
  13. PENTAMIDINE [Suspect]
     Active Substance: PENTAMIDINE
     Indication: Antifungal prophylaxis
  14. RITUXIMAB [Suspect]
     Active Substance: RITUXIMAB
     Indication: Immunosuppressant drug therapy
     Dosage: UNK
     Route: 065
  15. TACROLIMUS [Suspect]
     Active Substance: TACROLIMUS
     Indication: Immunosuppressant drug therapy
     Dosage: UNK, INCREASED (TROUGH LEVELS 10-15 NG/ML TO 15)
     Route: 048
  16. TACROLIMUS [Suspect]
     Active Substance: TACROLIMUS
     Indication: Focal segmental glomerulosclerosis
     Dosage: UNK, TROUGH LEVELS UP TO 10 NG/ML
     Route: 048
  17. TACROLIMUS [Suspect]
     Active Substance: TACROLIMUS
     Indication: Renal transplant
  18. THYMOGLOBULIN [Suspect]
     Active Substance: LAPINE T-LYMPHOCYTE IMMUNE GLOBULIN
     Indication: Product used for unknown indication
     Route: 065
  19. VALGANCICLOVIR [Suspect]
     Active Substance: VALGANCICLOVIR
     Indication: Antiviral prophylaxis
     Dosage: UNK
     Route: 065
  20. VALGANCICLOVIR [Suspect]
     Active Substance: VALGANCICLOVIR
     Dosage: UNK
     Route: 065
  21. COTRIMOXAZOLE [Concomitant]
     Active Substance: SULFAMETHOXAZOLE\TRIMETHOPRIM
     Indication: Pneumocystis jirovecii pneumonia
     Dosage: UNK
     Route: 065
  22. COTRIMOXAZOLE [Concomitant]
     Active Substance: SULFAMETHOXAZOLE\TRIMETHOPRIM
     Dosage: UNK
     Route: 065

REACTIONS (10)
  - Pneumocystis jirovecii pneumonia [Recovered/Resolved]
  - Cytomegalovirus infection reactivation [Recovered/Resolved]
  - Intentional product use issue [Unknown]
  - COVID-19 [Unknown]
  - Neutropenia [Unknown]
  - Haematotoxicity [Unknown]
  - Hypogammaglobulinaemia [Recovered/Resolved]
  - Cough [Unknown]
  - Drug ineffective for unapproved indication [Unknown]
  - Therapy non-responder [Unknown]
